FAERS Safety Report 10505469 (Version 1)
Quarter: 2014Q4

REPORT INFORMATION
  Report Type: Spontaneous
  Country: GB (occurrence: GB)
  Receive Date: 20141008
  Receipt Date: 20141008
  Transmission Date: 20150528
  Serious: Yes (Hospitalization)
  Sender: FDA-Public Use
  Company Number: GB-MERCK-1410GBR000918

PATIENT
  Age: 27 Year
  Sex: Male
  Weight: 81 kg

DRUGS (3)
  1. VIRAFERONPEG [Suspect]
     Active Substance: PEGINTERFERON ALFA-2B
     Dosage: 120 MICROGRAM, UNK
     Dates: start: 20140622, end: 20140917
  2. REBETOL [Suspect]
     Active Substance: RIBAVIRIN
     Dosage: 1200 G, UNK
     Dates: start: 20140622, end: 20140917
  3. TELAPREVIR [Suspect]
     Active Substance: TELAPREVIR
     Dosage: 1125 MG, BID
     Route: 048
     Dates: start: 20140622, end: 20140917

REACTIONS (1)
  - Drug eruption [Recovered/Resolved]

NARRATIVE: CASE EVENT DATE: 20140905
